FAERS Safety Report 7080900-7 (Version None)
Quarter: 2010Q4

REPORT INFORMATION
  Report Type: 
  Country: None (occurrence: None)
  Receive Date: 20101103
  Receipt Date: 20101028
  Transmission Date: 20110411
  Serious: Yes (Hospitalization)
  Sender: FDA-Public Use
  Company Number: GB-JNJFOC-20071109540

PATIENT
  Age: 30 Year
  Sex: Female
  Weight: 72 kg

DRUGS (7)
  1. PARACETAMOL [Suspect]
     Route: 065
  2. PARACETAMOL [Suspect]
     Indication: PAIN
     Route: 065
  3. CHLORPHENIRAMINE MALEATE [Suspect]
     Indication: PRURITUS
     Route: 042
  4. METRONIDAZOLE [Suspect]
     Indication: PRODUCT USED FOR UNKNOWN INDICATION
     Route: 042
  5. GENTAMICIN [Suspect]
     Indication: PRODUCT USED FOR UNKNOWN INDICATION
     Route: 042
  6. MORPHINE [Suspect]
     Indication: PAIN
     Route: 048
  7. CYCLOSPORINE [Concomitant]
     Indication: PSORIASIS
     Route: 048

REACTIONS (2)
  - DRUG EXPOSURE DURING PREGNANCY [None]
  - PUSTULAR PSORIASIS [None]
